FAERS Safety Report 4891765-3 (Version None)
Quarter: 2005Q4

REPORT INFORMATION
  Report Type: 
  Country: None (occurrence: None)
  Receive Date: 20051220
  Receipt Date: 20051003
  Transmission Date: 20060501
  Serious: Yes (Other)
  Sender: FDA-Public Use
  Company Number: 420174

PATIENT
  Age: 86 Year
  Sex: Female
  Weight: 54.4 kg

DRUGS (5)
  1. BONIVA [Suspect]
     Indication: OSTEOPOROSIS
     Dosage: 150 MG 1 PER MONTH ORAL
     Route: 048
     Dates: start: 20050803
  2. VITAMIN E (ALPHA-TOCOPHEROL) [Concomitant]
  3. CITRACAL (CALCIUM CITRATE) [Concomitant]
  4. MULTIVITAMIN [Concomitant]
  5. METHYLSULFONYLMETHANE (DIMETHYLSULFONE) [Concomitant]

REACTIONS (2)
  - HAIR GROWTH ABNORMAL [None]
  - HYPOTRICHOSIS [None]
